FAERS Safety Report 25017712 (Version 1)
Quarter: 2025Q1

REPORT INFORMATION
  Report Type: Spontaneous
  Country: US (occurrence: US)
  Receive Date: 20250227
  Receipt Date: 20250227
  Transmission Date: 20250408
  Serious: No
  Sender: MERCK SHARP & DOHME LLC
  Company Number: US-009507513-2254354

PATIENT
  Age: 14 Year
  Sex: Male

DRUGS (2)
  1. TEMODAR [Suspect]
     Active Substance: TEMOZOLOMIDE
     Route: 048
  2. AYVAKIT [Suspect]
     Active Substance: AVAPRITINIB
     Indication: Brain neoplasm malignant
     Dates: start: 20241218

REACTIONS (4)
  - Platelet count abnormal [Unknown]
  - Blood bilirubin increased [Unknown]
  - Tachycardia [Unknown]
  - Nausea [Unknown]
